FAERS Safety Report 23234898 (Version 13)
Quarter: 2025Q2

REPORT INFORMATION
  Report Type: Spontaneous
  Country: US (occurrence: US)
  Receive Date: 20231128
  Receipt Date: 20250408
  Transmission Date: 20250716
  Serious: Yes (Disabling, Other)
  Sender: AMGEN
  Company Number: US-HORIZON THERAPEUTICS-HZN-2023-009794

PATIENT
  Age: 75 Year
  Sex: Male

DRUGS (67)
  1. TEPEZZA [Suspect]
     Active Substance: TEPROTUMUMAB-TRBW
     Indication: Endocrine ophthalmopathy
     Route: 042
     Dates: start: 20210428
  2. TEPEZZA [Suspect]
     Active Substance: TEPROTUMUMAB-TRBW
     Route: 042
     Dates: start: 20210609
  3. TEPEZZA [Suspect]
     Active Substance: TEPROTUMUMAB-TRBW
     Route: 042
     Dates: start: 20210630
  4. TEPEZZA [Suspect]
     Active Substance: TEPROTUMUMAB-TRBW
     Route: 042
     Dates: start: 20210721
  5. TEPEZZA [Suspect]
     Active Substance: TEPROTUMUMAB-TRBW
     Route: 042
     Dates: start: 20210811
  6. TEPEZZA [Suspect]
     Active Substance: TEPROTUMUMAB-TRBW
     Route: 042
     Dates: start: 20210901
  7. TEPEZZA [Suspect]
     Active Substance: TEPROTUMUMAB-TRBW
     Route: 042
     Dates: start: 20210922
  8. TEPEZZA [Suspect]
     Active Substance: TEPROTUMUMAB-TRBW
     Route: 042
     Dates: start: 20211013
  9. PREDNISONE [Suspect]
     Active Substance: PREDNISONE
     Indication: Graves^ disease
     Route: 065
  10. ASPIRIN [Concomitant]
     Active Substance: ASPIRIN
     Dosage: 81 MILLIGRAM, BID
     Route: 048
     Dates: start: 20200731
  11. ASPIRIN [Concomitant]
     Active Substance: ASPIRIN
     Dosage: 81 MILLIGRAM, BID
     Route: 048
  12. Budesonide and Formoterol HFA [Concomitant]
     Route: 065
  13. CALCIUM CARBONATE [Concomitant]
     Active Substance: CALCIUM CARBONATE
     Dosage: 600 MILLIGRAM, QD
     Route: 048
  14. VITAMIN D3 [Concomitant]
     Active Substance: CHOLECALCIFEROL
     Route: 065
  15. CHLORTHALIDONE [Concomitant]
     Active Substance: CHLORTHALIDONE
     Route: 065
     Dates: start: 20210928
  16. CHLORTHALIDONE [Concomitant]
     Active Substance: CHLORTHALIDONE
     Route: 065
     Dates: start: 20241111
  17. COENZYME Q10 [Concomitant]
     Active Substance: DIETARY SUPPLEMENT\UBIDECARENONE
     Route: 065
  18. DRONABINOL [Concomitant]
     Active Substance: DRONABINOL
     Dosage: 2.5 MILLIGRAM, BID
     Route: 048
  19. METHOCARBAMOL [Concomitant]
     Active Substance: METHOCARBAMOL
     Indication: Muscle spasms
     Dosage: 750 MILLIGRAM, TID
     Route: 048
  20. NABUMETONE [Concomitant]
     Active Substance: NABUMETONE
     Dosage: 500 MILLIGRAM, BID
     Route: 048
  21. OMEPRAZOLE [Concomitant]
     Active Substance: OMEPRAZOLE
     Dosage: 20 MILLIGRAM, QD
     Route: 048
  22. OMEPRAZOLE [Concomitant]
     Active Substance: OMEPRAZOLE
     Dosage: 40 MILLIGRAM, QD
     Route: 048
  23. SILDENAFIL [Concomitant]
     Active Substance: SILDENAFIL
     Dosage: 80 MILLIGRAM, QD
     Route: 048
  24. TOBRADEX [Concomitant]
     Active Substance: DEXAMETHASONE\TOBRAMYCIN
     Route: 065
     Dates: start: 20230912
  25. PRAVASTATIN [Concomitant]
     Active Substance: PRAVASTATIN
     Indication: Hyperlipidaemia
     Dosage: 10 MILLIGRAM, QD, (4 PILLS X 2 DAYS THEN 3 PILLS X 2 DAYS THEN 2 PILLS X 5 DAYS THEN 1 PILL X 5 DAYS
     Route: 048
  26. TRELEGY ELLIPTA [Concomitant]
     Active Substance: FLUTICASONE FUROATE\UMECLIDINIUM BROMIDE\VILANTEROL TRIFENATATE
     Dosage: UNK, 1 PUFF
     Route: 048
  27. GLUCOSAMINE [Concomitant]
     Active Substance: GLUCOSAMINE
     Dosage: 1000 MILLIGRAM, QD
     Route: 048
     Dates: start: 20210928
  28. ESOMEPRAZOLE [Concomitant]
     Active Substance: ESOMEPRAZOLE
     Dosage: UNK, QD
     Route: 065
  29. DIETARY SUPPLEMENT\PROBIOTICS [Concomitant]
     Active Substance: DIETARY SUPPLEMENT\PROBIOTICS NOS
     Route: 048
  30. VITAMIN C [Concomitant]
     Active Substance: ASCORBIC ACID
     Dosage: 1000 MILLIGRAM, QD
     Route: 048
  31. ZITHROMAX [Concomitant]
     Active Substance: AZITHROMYCIN DIHYDRATE
     Route: 065
  32. MINERALS\VITAMINS [Concomitant]
     Active Substance: MINERALS\VITAMINS
     Dosage: UNK, QD ONE TABLET
     Route: 048
  33. SYMBICORT [Concomitant]
     Active Substance: BUDESONIDE\FORMOTEROL FUMARATE DIHYDRATE
     Dosage: UNK, Q12H
  34. LIDEX [Concomitant]
     Active Substance: FLUOCINONIDE
     Dosage: 0.05 PERCENT, BID
     Route: 061
  35. DOXYCYCLINE [Concomitant]
     Active Substance: DOXYCYCLINE
     Route: 065
  36. LUMIFY [Concomitant]
     Active Substance: BRIMONIDINE TARTRATE
     Dosage: 0.025 PERCENT, QD
     Route: 065
  37. GARLIC [Concomitant]
     Active Substance: GARLIC
     Dosage: 1000 MILLIGRAM, QD
     Route: 048
  38. TESSALON [Concomitant]
     Active Substance: BENZONATATE
     Dosage: 100 MILLIGRAM, TID
     Route: 048
  39. AMITIZA [Concomitant]
     Active Substance: LUBIPROSTONE
     Dosage: 24 MILLIGRAM, BID
     Route: 048
  40. FERROUS GLUCONATE [Concomitant]
     Active Substance: FERROUS GLUCONATE
     Route: 065
     Dates: start: 20241111
  41. ASCORBIC ACID [Concomitant]
     Active Substance: ASCORBIC ACID
     Route: 065
     Dates: start: 20241111
  42. LEVOTHYROXINE SODIUM [Concomitant]
     Active Substance: LEVOTHYROXINE SODIUM
     Route: 048
     Dates: start: 20210928
  43. LEVOTHYROXINE SODIUM [Concomitant]
     Active Substance: LEVOTHYROXINE SODIUM
     Route: 065
     Dates: start: 20241111
  44. LIOTHYRONINE SODIUM [Concomitant]
     Active Substance: LIOTHYRONINE SODIUM
     Route: 048
     Dates: start: 20241111
  45. ALBUTEROL [Concomitant]
     Active Substance: ALBUTEROL
     Route: 065
     Dates: start: 20241111
  46. HYDROCORTISONE [Concomitant]
     Active Substance: HYDROCORTISONE
     Dosage: UNK UNK, BID
     Route: 065
  47. Hylo [Concomitant]
     Dosage: UNK UNK, QHS
     Route: 047
  48. AMOXICILLIN [Concomitant]
     Active Substance: AMOXICILLIN
     Dosage: UNK UNK, BID
     Route: 048
  49. AZITHROMYCIN [Concomitant]
     Active Substance: AZITHROMYCIN
     Dosage: 250 MILLIGRAM, QD
     Route: 048
  50. BENZONATATE [Concomitant]
     Active Substance: BENZONATATE
     Indication: Cough
     Dosage: 100 MILLIGRAM, BID
     Route: 048
  51. BUDESONIDE\FORMOTEROL [Concomitant]
     Active Substance: BUDESONIDE\FORMOTEROL
     Dosage: UNK UNK, Q12H
     Route: 045
  52. CEFDINIR [Concomitant]
     Active Substance: CEFDINIR
     Route: 065
  53. CICLOPIROX [Concomitant]
     Active Substance: CICLOPIROX
     Dosage: UNK UNK, BID
     Route: 061
  54. CLONIDINE HYDROCHLORIDE [Concomitant]
     Active Substance: CLONIDINE HYDROCHLORIDE
     Dosage: 0.1 MILLIGRAM, BID
     Route: 048
  55. CODEINE GUAIFENESIN [Concomitant]
     Active Substance: CODEINE PHOSPHATE\GUAIFENESIN
     Indication: Cough
  56. DOXYCYCLINE HYCLATE [Concomitant]
     Active Substance: DOXYCYCLINE HYCLATE
     Dosage: 100 MILLIGRAM, BID
     Route: 048
  57. FLUCONAZOLE [Concomitant]
     Active Substance: FLUCONAZOLE
     Route: 065
  58. FLUOCINONIDE [Concomitant]
     Active Substance: FLUOCINONIDE
     Dosage: UNK UNK, BID
     Route: 065
  59. FLUOCINONIDE [Concomitant]
     Active Substance: FLUOCINONIDE
  60. Klor-con m15 [Concomitant]
     Dosage: 15 MICROGRAM, BID
     Route: 048
  61. LIVALO [Concomitant]
     Active Substance: PITAVASTATIN CALCIUM
     Dosage: 1 MILLIGRAM, QD
     Route: 048
  62. OXYCODONE [Concomitant]
     Active Substance: OXYCODONE
     Indication: Pain
     Dosage: 5 MILLIGRAM, QD
     Route: 048
  63. PAXLOVID [Concomitant]
     Active Substance: NIRMATRELVIR\RITONAVIR
     Route: 065
  64. PLENVU [Concomitant]
     Active Substance: ASCORBIC ACID\POLYETHYLENE GLYCOL 3350\POTASSIUM CHLORIDE\SODIUM ASCORBATE\SODIUM CHLORIDE\SODIUM SU
     Route: 065
  65. TERBINAFINE HYDROCHLORIDE [Concomitant]
     Active Substance: TERBINAFINE HYDROCHLORIDE
     Dosage: 250 MILLIGRAM, QD
     Route: 048
  66. TOBRAMYCIN AND DEXAMETHASONE [Concomitant]
     Active Substance: DEXAMETHASONE\TOBRAMYCIN
     Dosage: UNK, QID
     Route: 047
  67. UREA [Concomitant]
     Active Substance: UREA
     Dosage: UNK, QD
     Route: 061

REACTIONS (96)
  - Physical disability [Not Recovered/Not Resolved]
  - Deafness [Not Recovered/Not Resolved]
  - Lower respiratory tract infection [Unknown]
  - Aortic arteriosclerosis [Unknown]
  - Exophthalmos [Unknown]
  - Hypokalaemia [Unknown]
  - Spinal fracture [Unknown]
  - Ileus [Unknown]
  - Pneumonia [Unknown]
  - Rib fracture [Unknown]
  - Myelopathy [Unknown]
  - Orbital myositis [Unknown]
  - Cervical vertebral fracture [Recovered/Resolved]
  - Carotid artery occlusion [Unknown]
  - Graves^ disease [Unknown]
  - Dislocation of vertebra [Unknown]
  - Cervical spinal stenosis [Unknown]
  - Road traffic accident [Unknown]
  - Injury [Not Recovered/Not Resolved]
  - Pain [Not Recovered/Not Resolved]
  - Nail dystrophy [Unknown]
  - Skin irritation [Unknown]
  - Emotional distress [Not Recovered/Not Resolved]
  - Product design issue [Unknown]
  - Economic problem [Not Recovered/Not Resolved]
  - Ear congestion [Unknown]
  - Eczema eyelids [Not Recovered/Not Resolved]
  - Tinnitus [Unknown]
  - Alopecia [Unknown]
  - Hypoacusis [Not Recovered/Not Resolved]
  - Muscle spasms [Unknown]
  - Diplopia [Unknown]
  - Sinus bradycardia [Unknown]
  - Essential hypertension [Unknown]
  - Post procedural hypothyroidism [Unknown]
  - Cough [Unknown]
  - Rash [Unknown]
  - Hyperhidrosis [Unknown]
  - Temperature intolerance [Unknown]
  - Weight decreased [Unknown]
  - Arthralgia [Unknown]
  - Back pain [Unknown]
  - Gait disturbance [Unknown]
  - Myalgia [Unknown]
  - Neck pain [Unknown]
  - Asthenia [Unknown]
  - Hypoaesthesia [Unknown]
  - Haemoglobin decreased [Unknown]
  - Haematocrit decreased [Unknown]
  - Low density lipoprotein increased [Unknown]
  - Constipation [Unknown]
  - Blood glucose increased [Unknown]
  - Blood creatine phosphokinase increased [Unknown]
  - Dyspnoea [Unknown]
  - Wheezing [Unknown]
  - Haematuria [Unknown]
  - Abdominal discomfort [Unknown]
  - Sensory loss [Unknown]
  - Carbon dioxide increased [Unknown]
  - Gastrooesophageal reflux disease [Unknown]
  - Osteoarthritis [Unknown]
  - Benign prostatic hyperplasia [Unknown]
  - Hyperlipidaemia [Unknown]
  - Bronchitis bacterial [Unknown]
  - Prostatomegaly [Unknown]
  - COVID-19 [Unknown]
  - Chills [Unknown]
  - Sputum purulent [Unknown]
  - Ocular hyperaemia [Unknown]
  - Eye pruritus [Unknown]
  - Conjunctivitis allergic [Unknown]
  - Chronic obstructive pulmonary disease [Unknown]
  - Blood potassium decreased [Unknown]
  - Tinea cruris [Unknown]
  - Rales [Unknown]
  - Aspartate aminotransferase increased [Unknown]
  - Joint swelling [Unknown]
  - Weight increased [Unknown]
  - Neurodermatitis [Unknown]
  - Bursitis [Unknown]
  - Nasal congestion [Unknown]
  - Epistaxis [Unknown]
  - Upper-airway cough syndrome [Unknown]
  - Rhinorrhoea [Unknown]
  - Paranasal sinus discomfort [Unknown]
  - Blood chloride increased [Unknown]
  - Sinusitis [Unknown]
  - Myopathy [Unknown]
  - Amnesia [Unknown]
  - Cognitive disorder [Unknown]
  - Emphysema [Unknown]
  - Muscle strain [Unknown]
  - Spinal osteoarthritis [Unknown]
  - Kyphosis [Unknown]
  - Off label use [Unknown]
  - Neck injury [Unknown]

NARRATIVE: CASE EVENT DATE: 20180821
